FAERS Safety Report 26171492 (Version 1)
Quarter: 2025Q4

REPORT INFORMATION
  Report Type: Spontaneous
  Country: EU (occurrence: EU)
  Receive Date: 20251217
  Receipt Date: 20251217
  Transmission Date: 20260118
  Serious: Yes (Disabling)
  Sender: MYLAN
  Company Number: None

PATIENT
  Age: 71 Year
  Sex: Female
  Weight: 78 kg

DRUGS (3)
  1. TOBRAMYCIN SULFATE [Suspect]
     Active Substance: TOBRAMYCIN SULFATE
     Indication: Infection prophylaxis
     Dosage: 40 MILLILITER, INTRAVENOUSLY (30 ML STARTING ONE MONTH AGO)
  2. TOBRAMYCIN SULFATE [Suspect]
     Active Substance: TOBRAMYCIN SULFATE
     Dosage: 30 MILLILITER, INTRAVENOUSLY (30 ML STARTING ONE MONTH AGO)
  3. VANCOMYCIN [Concomitant]
     Active Substance: VANCOMYCIN
     Dosage: FOR 2 WEEKS TOGETHER WITH NEBCINA
     Dates: start: 202510, end: 202510

REACTIONS (3)
  - Ear discomfort [Not Recovered/Not Resolved]
  - Hypoacusis [Not Recovered/Not Resolved]
  - Tinnitus [Not Recovered/Not Resolved]

NARRATIVE: CASE EVENT DATE: 20250101
